FAERS Safety Report 4300552-6 (Version None)
Quarter: 2004Q1

REPORT INFORMATION
  Report Type: 
  Country: None (occurrence: None)
  Receive Date: 20040218
  Receipt Date: 20040202
  Transmission Date: 20041129
  Serious: Yes (Other)
  Sender: FDA-Public Use
  Company Number: DSA_23957_2004

PATIENT
  Age: 81 Year
  Sex: Female
  Weight: 87.9978 kg

DRUGS (7)
  1. ENALAPRIL MALEATE [Suspect]
     Indication: CARDIAC DISORDER
     Dosage: 5 MG Q DAY PO
     Route: 048
     Dates: start: 19920101
  2. ENALAPRIL MALEATE [Suspect]
     Indication: HYPERTENSION
     Dosage: 5 MG Q DAY PO
     Route: 048
     Dates: start: 19920101
  3. AZULENE SULFONATE SODIUM + LEVOGLUTAMINE [Concomitant]
  4. IBUPROFEN [Concomitant]
  5. MEFENAMIC ACID [Concomitant]
  6. METOPROLOL TARTRATE [Concomitant]
  7. NIFEDIPINE [Concomitant]

REACTIONS (2)
  - ANGIONEUROTIC OEDEMA [None]
  - DYSPHAGIA [None]
